FAERS Safety Report 14478289 (Version 2)
Quarter: 2018Q3

REPORT INFORMATION
  Report Type: Spontaneous
  Country: AT (occurrence: AT)
  Receive Date: 20180202
  Receipt Date: 20180926
  Transmission Date: 20181010
  Serious: Yes (Hospitalization, Other)
  Sender: FDA-Public Use
  Company Number: AT-TEVA-818970ISR

PATIENT
  Age: 67 Year
  Sex: Female

DRUGS (35)
  1. RISPERDAL [Concomitant]
     Active Substance: RISPERIDONE
     Route: 065
     Dates: start: 20170626, end: 20170629
  2. TEMESTA [Concomitant]
     Route: 065
     Dates: start: 20170720
  3. NACL [Concomitant]
     Active Substance: SODIUM CHLORIDE
     Route: 065
     Dates: start: 20170614, end: 20170620
  4. GLUCOPHAGE [Concomitant]
     Active Substance: METFORMIN HYDROCHLORIDE
     Route: 065
     Dates: start: 20170614, end: 20170703
  5. MOLAXOLE [Concomitant]
     Active Substance: POLYETHYLENE GLYCOL 3350\POTASSIUM CHLORIDE\SODIUM BICARBONATE\SODIUM CHLORIDE
     Route: 065
     Dates: start: 20170614, end: 20170707
  6. ABILIFY [Concomitant]
     Active Substance: ARIPIPRAZOLE
     Route: 065
     Dates: start: 20170727
  7. RISPERDAL [Concomitant]
     Active Substance: RISPERIDONE
     Route: 065
     Dates: start: 20170630, end: 20170630
  8. ABILIFY [Concomitant]
     Active Substance: ARIPIPRAZOLE
     Route: 065
     Dates: start: 20170725, end: 20170726
  9. SEROQUEL [Suspect]
     Active Substance: QUETIAPINE FUMARATE
     Route: 065
     Dates: start: 20170614, end: 20170616
  10. SEROQUEL [Suspect]
     Active Substance: QUETIAPINE FUMARATE
     Route: 065
     Dates: start: 20170619, end: 20170619
  11. RISPERDAL [Concomitant]
     Active Substance: RISPERIDONE
     Route: 065
     Dates: start: 20170706, end: 20170706
  12. SELEXID [Concomitant]
     Route: 065
     Dates: start: 20170627, end: 20170630
  13. PRAXITEN [Concomitant]
     Active Substance: OXAZEPAM
     Route: 065
     Dates: start: 20170701, end: 20170704
  14. AMANTADINE SULFATE [Concomitant]
     Active Substance: AMANTADINE SULFATE
     Route: 065
     Dates: start: 20170708, end: 20170719
  15. TEMESTA [Concomitant]
     Route: 065
     Dates: start: 20170707, end: 20170719
  16. PANTOLOLC [Concomitant]
     Route: 065
     Dates: start: 20170614, end: 20170707
  17. SERTRALINE [Suspect]
     Active Substance: SERTRALINE HYDROCHLORIDE
     Route: 065
     Dates: start: 20170614, end: 20170619
  18. LEPONEX [Suspect]
     Active Substance: CLOZAPINE
     Route: 065
     Dates: start: 20170614, end: 20170619
  19. PRAXITEN [Concomitant]
     Active Substance: OXAZEPAM
     Route: 065
     Dates: start: 20170614, end: 20170616
  20. PRAXITEN [Concomitant]
     Active Substance: OXAZEPAM
     Route: 065
     Dates: start: 20170617, end: 20170617
  21. PRAXITEN [Concomitant]
     Active Substance: OXAZEPAM
     Route: 065
     Dates: start: 20170618, end: 20170618
  22. PRAXITEN [Concomitant]
     Active Substance: OXAZEPAM
     Route: 065
     Dates: start: 20170621, end: 20170626
  23. PRAXITEN [Concomitant]
     Active Substance: OXAZEPAM
     Route: 065
     Dates: start: 20170705, end: 20170706
  24. RISPERDAL [Concomitant]
     Active Substance: RISPERIDONE
     Route: 065
     Dates: start: 20170701, end: 20170702
  25. RISPERDAL [Concomitant]
     Active Substance: RISPERIDONE
     Route: 065
     Dates: start: 20170703, end: 20170704
  26. SEROQUEL [Suspect]
     Active Substance: QUETIAPINE FUMARATE
     Route: 065
     Dates: start: 20170617, end: 20170618
  27. PRAXITEN [Concomitant]
     Active Substance: OXAZEPAM
     Route: 065
     Dates: start: 20170619, end: 20170620
  28. PRAXITEN [Concomitant]
     Active Substance: OXAZEPAM
     Route: 065
     Dates: start: 20170626, end: 20170630
  29. LAEVOLAC [Concomitant]
     Active Substance: LACTULOSE
     Dosage: 2 SPOONS
     Route: 065
     Dates: start: 20170723
  30. SEROQUEL [Suspect]
     Active Substance: QUETIAPINE FUMARATE
     Route: 065
     Dates: start: 20170620, end: 20170620
  31. LEPONEX [Suspect]
     Active Substance: CLOZAPINE
     Route: 065
     Dates: start: 20170620, end: 20170620
  32. RISPERDAL [Concomitant]
     Active Substance: RISPERIDONE
     Route: 065
     Dates: start: 20170705, end: 20170705
  33. AKINETON [Suspect]
     Active Substance: BIPERIDEN HYDROCHLORIDE
     Route: 065
     Dates: start: 20170614, end: 20170622
  34. AKINETON [Suspect]
     Active Substance: BIPERIDEN HYDROCHLORIDE
     Route: 065
     Dates: start: 20170703, end: 20170707
  35. LOVENOX [Concomitant]
     Active Substance: ENOXAPARIN SODIUM
     Route: 065
     Dates: start: 20170621, end: 20170729

REACTIONS (5)
  - Delirium [Recovered/Resolved]
  - Underdose [Unknown]
  - Wrong technique in product usage process [Unknown]
  - Extrapyramidal disorder [Recovered/Resolved]
  - Neuroleptic malignant syndrome [Recovered/Resolved]

NARRATIVE: CASE EVENT DATE: 20170619
